FAERS Safety Report 21834316 (Version 1)
Quarter: 2023Q1

REPORT INFORMATION
  Report Type: Spontaneous
  Country: US (occurrence: None)
  Receive Date: 20230108
  Receipt Date: 20230108
  Transmission Date: 20230417
  Serious: No
  Sender: FDA-Public Use
  Company Number: US-ROCHE-3170475

PATIENT
  Sex: Male

DRUGS (1)
  1. HEMLIBRA [Suspect]
     Active Substance: EMICIZUMAB-KXWH
     Indication: Factor VIII deficiency
     Dosage: STRENGTH - 60MG/0.4 ML
     Route: 058
     Dates: start: 20201218

REACTIONS (4)
  - Injection site ulcer [Unknown]
  - Gait inability [Unknown]
  - Pain [Unknown]
  - Swelling [Unknown]
